FAERS Safety Report 12279212 (Version 2)
Quarter: 2016Q4

REPORT INFORMATION
  Report Type: Spontaneous
  Country: US (occurrence: US)
  Receive Date: 20160418
  Receipt Date: 20161019
  Transmission Date: 20170207
  Serious: No
  Sender: FDA-Public Use
  Company Number: US-OTSUKA-2016_002093

PATIENT
  Sex: Female

DRUGS (7)
  1. HYDROCODONE [Concomitant]
     Active Substance: HYDROCODONE
     Indication: FIBROMYALGIA
  2. REXULTI [Suspect]
     Active Substance: BREXPIPRAZOLE
     Indication: BIPOLAR DISORDER
     Dosage: 0.5MG OR 1MG, QD
     Route: 065
     Dates: start: 2015
  3. REXULTI [Suspect]
     Active Substance: BREXPIPRAZOLE
     Dosage: UNK (SPLIT TABLET IN HALVES AND QUARTER)
     Route: 065
  4. REXULTI [Suspect]
     Active Substance: BREXPIPRAZOLE
     Dosage: 0.5MG OR 1MG, QD
     Route: 065
     Dates: start: 20160121
  5. HYDROCODONE [Concomitant]
     Active Substance: HYDROCODONE
     Indication: BACK PAIN
  6. HYDROCODONE [Concomitant]
     Active Substance: HYDROCODONE
     Indication: PAIN
     Dosage: UNK
     Route: 065
  7. MELOXICAM. [Concomitant]
     Active Substance: MELOXICAM
     Indication: ARTHRITIS
     Dosage: UNK
     Route: 065

REACTIONS (8)
  - Mental disorder [Unknown]
  - Movement disorder [Unknown]
  - Back pain [Unknown]
  - Wrong technique in product usage process [Unknown]
  - Somnolence [Unknown]
  - Tremor [Unknown]
  - Off label use [Unknown]
  - Dyspnoea [Unknown]
